FAERS Safety Report 12775956 (Version 1)
Quarter: 2016Q3

REPORT INFORMATION
  Report Type: Report from Study
  Country: DE (occurrence: DE)
  Receive Date: 20160923
  Receipt Date: 20160923
  Transmission Date: 20161109
  Serious: Yes (Hospitalization, Other)
  Sender: FDA-Public Use
  Company Number: DE-SA-2016SA110481

PATIENT
  Age: 29 Year
  Sex: Female

DRUGS (3)
  1. CETIRIZINE [Concomitant]
     Active Substance: CETIRIZINE HYDROCHLORIDE
     Indication: HYPERSENSITIVITY
     Route: 048
  2. CORTISONE [Concomitant]
     Active Substance: CORTISONE\HYDROCORTISONE
     Route: 042
     Dates: start: 20150629, end: 20150703
  3. LEMTRADA [Suspect]
     Active Substance: ALEMTUZUMAB
     Indication: MULTIPLE SCLEROSIS
     Route: 041
     Dates: start: 20150629, end: 20150703

REACTIONS (3)
  - Rehabilitation therapy [Unknown]
  - Tuberculosis [Unknown]
  - Rash pustular [Recovered/Resolved]

NARRATIVE: CASE EVENT DATE: 2015
